FAERS Safety Report 22123934 (Version 1)
Quarter: 2023Q1

REPORT INFORMATION
  Report Type: Spontaneous
  Country: US (occurrence: US)
  Receive Date: 20230322
  Receipt Date: 20230322
  Transmission Date: 20230418
  Serious: Yes (Hospitalization, Other)
  Sender: FDA-Public Use
  Company Number: US-GLAXOSMITHKLINE-US2023040338

PATIENT

DRUGS (1)
  1. ADVAIR DISKUS [Suspect]
     Active Substance: FLUTICASONE PROPIONATE\SALMETEROL XINAFOATE
     Indication: Asthma
     Dosage: 1 PUFF(S), BID, 500/ 50 MCG

REACTIONS (7)
  - Infection [Unknown]
  - Pelvic fracture [Unknown]
  - Peroneal nerve palsy [Unknown]
  - Multiple sclerosis [Unknown]
  - Foot fracture [Unknown]
  - Spinal operation [Unknown]
  - Surgery [Unknown]

NARRATIVE: CASE EVENT DATE: 20210721
